FAERS Safety Report 23553474 (Version 3)
Quarter: 2024Q1

REPORT INFORMATION
  Report Type: Spontaneous
  Country: US (occurrence: US)
  Receive Date: 20240222
  Receipt Date: 20240304
  Transmission Date: 20240410
  Serious: No
  Sender: FDA-Public Use
  Company Number: US-PFIZER INC-2020100978

PATIENT
  Age: 75 Year
  Sex: Female

DRUGS (4)
  1. BOSULIF [Suspect]
     Active Substance: BOSUTINIB MONOHYDRATE
     Indication: Chronic myeloid leukaemia
     Dosage: TAKE 1 TABLET 5 DAYS A WEEK, TAKE WITH FOOD. SWALLOW, DO NOT CRUSH OR CUT.
     Route: 048
  2. BOSULIF [Suspect]
     Active Substance: BOSUTINIB MONOHYDRATE
     Dosage: ONE TABLET EVERY OTHER DAY. TAKE WITH FOOD, SWALLOW WHOLE, DO NOT CRUSH OR CUT
     Route: 048
  3. BOSULIF [Suspect]
     Active Substance: BOSUTINIB MONOHYDRATE
     Dosage: 100 MG
  4. NEURONTIN [Concomitant]
     Active Substance: GABAPENTIN
     Dosage: 300 MG

REACTIONS (3)
  - Off label use [Unknown]
  - Off label use [Unknown]
  - Anxiety [Unknown]
